FAERS Safety Report 6698422-1 (Version None)
Quarter: 2010Q2

REPORT INFORMATION
  Report Type: 
  Country: None (occurrence: None)
  Receive Date: 20100427
  Receipt Date: 20100422
  Transmission Date: 20101027
  Serious: Yes (Death, Other)
  Sender: FDA-Public Use
  Company Number: US-SANOFI-AVENTIS-2010SA023923

PATIENT
  Age: 79 Year
  Sex: Male

DRUGS (4)
  1. PLAVIX [Suspect]
     Route: 048
     Dates: start: 19990101
  2. OMEPRAZOLE [Concomitant]
  3. ANTIHYPERTENSIVES [Concomitant]
     Dates: end: 20090101
  4. ANTIHYPERTENSIVES [Concomitant]

REACTIONS (8)
  - ARTHROPATHY [None]
  - DYSARTHRIA [None]
  - EYE DISORDER [None]
  - INFLUENZA LIKE ILLNESS [None]
  - LOSS OF CONSCIOUSNESS [None]
  - MYOCARDIAL INFARCTION [None]
  - ROAD TRAFFIC ACCIDENT [None]
  - STAPHYLOCOCCAL INFECTION [None]
